FAERS Safety Report 8333350-7 (Version None)
Quarter: 2012Q2

REPORT INFORMATION
  Report Type: 
  Country: None (occurrence: None)
  Receive Date: 20120503
  Receipt Date: 20120425
  Transmission Date: 20120825
  Serious: Yes (Other)
  Sender: FDA-Public Use
  Company Number: US-PFIZER INC-2012068405

PATIENT
  Sex: Female

DRUGS (4)
  1. COGENTIN [Concomitant]
     Dosage: UNK
  2. PERPHENAZINE [Concomitant]
     Dosage: UNK
  3. EFFEXOR XR [Suspect]
     Dosage: 150 MG, UNK
  4. VISTARIL [Concomitant]
     Dosage: UNK

REACTIONS (2)
  - PSYCHOTIC DISORDER [None]
  - BIPOLAR DISORDER [None]
